FAERS Safety Report 6907826-0 (Version None)
Quarter: 2010Q3

REPORT INFORMATION
  Report Type: 
  Country: None (occurrence: None)
  Receive Date: 20100712
  Receipt Date: 20100330
  Transmission Date: 20110219
  Serious: No
  Sender: FDA-Public Use
  Company Number: US-000054

PATIENT
  Sex: Female
  Weight: 18 kg

DRUGS (1)
  1. KUVAN [Suspect]
     Indication: PHENYLKETONURIA
     Dosage: (150 MG IN AM AND 200 MG IN PM ORAL)
     Route: 048
     Dates: start: 20100204, end: 20100218

REACTIONS (1)
  - RASH GENERALISED [None]
